FAERS Safety Report 10202798 (Version 1)
Quarter: 2014Q2

REPORT INFORMATION
  Report Type: Spontaneous
  Country: CN (occurrence: CN)
  Receive Date: 20140528
  Receipt Date: 20140528
  Transmission Date: 20141212
  Serious: Yes (Hospitalization)
  Sender: FDA-Public Use
  Company Number: PHHY2014CN061073

PATIENT
  Age: 63 Year
  Sex: Female

DRUGS (4)
  1. ISONIAZID [Suspect]
     Indication: PULMONARY TUBERCULOSIS
     Dosage: 300 MG, PER DAY
  2. ETHAMBUTOL [Suspect]
     Indication: PULMONARY TUBERCULOSIS
     Dosage: 750 MG, PER DAY
  3. PYRAZINAMIDE [Suspect]
     Indication: PULMONARY TUBERCULOSIS
     Dosage: 1500 MG, PER DAY
  4. RIFAMPICIN [Suspect]
     Indication: PULMONARY TUBERCULOSIS
     Dosage: 450 MG, PER DAY

REACTIONS (9)
  - Pseudomembranous colitis [Recovered/Resolved]
  - Diarrhoea [Unknown]
  - Abdominal pain [Unknown]
  - Rectal tenesmus [Unknown]
  - Gastrointestinal sounds abnormal [Unknown]
  - Clostridium difficile infection [Unknown]
  - Secretion discharge [Unknown]
  - Skin plaque [Unknown]
  - Skin lesion [Unknown]
